FAERS Safety Report 21059063 (Version 1)
Quarter: 2022Q3

REPORT INFORMATION
  Report Type: Spontaneous
  Country: US (occurrence: US)
  Receive Date: 20220708
  Receipt Date: 20220708
  Transmission Date: 20221026
  Serious: No
  Sender: FDA-Public Use
  Company Number: US-Sunny_Pharmtech-USA-POI0573202100373

PATIENT
  Age: 61 Year
  Sex: Female

DRUGS (3)
  1. NITROFURANTOIN [Suspect]
     Active Substance: NITROFURANTOIN
     Indication: Urinary tract infection
     Route: 048
     Dates: start: 20210923, end: 20210930
  2. UNSPECFIED HORMONES [Concomitant]
     Indication: Product used for unknown indication
  3. UNNSPECIFED THYROID MEDICATION [Concomitant]
     Indication: Product used for unknown indication

REACTIONS (6)
  - Dyspnoea [Recovered/Resolved]
  - Pyrexia [Recovered/Resolved]
  - Urticaria [Recovering/Resolving]
  - Pruritus [Recovered/Resolved]
  - Heart rate increased [Recovered/Resolved]
  - Blood pressure increased [Recovered/Resolved]

NARRATIVE: CASE EVENT DATE: 20210901
